FAERS Safety Report 7290946-1 (Version None)
Quarter: 2011Q1

REPORT INFORMATION
  Report Type: 
  Country: None (occurrence: None)
  Receive Date: 20110214
  Receipt Date: 20110209
  Transmission Date: 20110831
  Serious: Yes (Other)
  Sender: FDA-Public Use
  Company Number: TW-BRISTOL-MYERS SQUIBB COMPANY-15544513

PATIENT
  Age: 25 Year
  Sex: Male

DRUGS (2)
  1. ARIPIPRAZOLE [Suspect]
  2. SERTRALINE HYDROCHLORIDE [Suspect]

REACTIONS (3)
  - DYSURIA [None]
  - ANXIETY [None]
  - AKATHISIA [None]
